FAERS Safety Report 16461663 (Version 1)
Quarter: 2019Q2

REPORT INFORMATION
  Report Type: Report from Study
  Country: None (occurrence: DO)
  Receive Date: 20190621
  Receipt Date: 20190621
  Transmission Date: 20190711
  Serious: Yes (Hospitalization)
  Sender: FDA-Public Use
  Company Number: DO-ABBVIE-19K-279-2828819-00

PATIENT
  Age: 37 Year
  Sex: Female

DRUGS (1)
  1. HUMIRA [Suspect]
     Active Substance: ADALIMUMAB
     Indication: CROHN^S DISEASE
     Route: 058
     Dates: start: 20180620, end: 2019

REACTIONS (4)
  - Dehydration [Recovering/Resolving]
  - Dry skin [Recovering/Resolving]
  - Urinary tract infection [Recovering/Resolving]
  - Amoebic dysentery [Recovering/Resolving]

NARRATIVE: CASE EVENT DATE: 20190614
